FAERS Safety Report 5123244-2 (Version None)
Quarter: 2006Q4

REPORT INFORMATION
  Report Type: 
  Country: None (occurrence: None)
  Receive Date: 20061009
  Receipt Date: 20060920
  Transmission Date: 20070319
  Serious: Yes (Hospitalization)
  Sender: FDA-Public Use
  Company Number: US-GLAXOSMITHKLINE-A0620714A

PATIENT
  Age: 32 Year
  Sex: Male
  Weight: 105 kg

DRUGS (5)
  1. WELLBUTRIN [Suspect]
     Route: 048
     Dates: start: 20050501, end: 20050601
  2. WELLBUTRIN [Suspect]
     Indication: DEPRESSION
     Dosage: 150MG PER DAY
     Route: 048
     Dates: start: 20060906, end: 20060917
  3. LEXAPRO [Concomitant]
  4. XANAX [Concomitant]
  5. CELEXA [Concomitant]
     Indication: DEPRESSION
     Dosage: 20MG PER DAY
     Route: 048
     Dates: start: 20060101

REACTIONS (11)
  - ANXIETY [None]
  - ARTHRALGIA [None]
  - DELUSION [None]
  - DRUG HYPERSENSITIVITY [None]
  - HEPATIC ENZYME INCREASED [None]
  - JOINT SWELLING [None]
  - JUVENILE ARTHRITIS [None]
  - PRURITUS [None]
  - SERUM SICKNESS [None]
  - URTICARIA [None]
  - WEIGHT INCREASED [None]
